FAERS Safety Report 23014601 (Version 1)
Quarter: 2023Q4

REPORT INFORMATION
  Report Type: Spontaneous
  Country: US (occurrence: US)
  Receive Date: 20231002
  Receipt Date: 20231002
  Transmission Date: 20240110
  Serious: No
  Sender: FDA-Public Use
  Company Number: US-AMGEN-USASP2023173118

PATIENT
  Age: 30 Year
  Sex: Female

DRUGS (9)
  1. AIMOVIG [Suspect]
     Active Substance: ERENUMAB-AOOE
     Indication: Product used for unknown indication
     Dosage: UNK UNK, UNK
     Route: 065
  2. LEVOTHYROXINE [Concomitant]
     Active Substance: LEVOTHYROXINE
  3. PROPRANOLOL [Concomitant]
     Active Substance: PROPRANOLOL HYDROCHLORIDE
  4. UBRELVY [Concomitant]
     Active Substance: UBROGEPANT
  5. OXYCODONE [Concomitant]
     Active Substance: OXYCODONE
  6. TORADOL [Concomitant]
     Active Substance: KETOROLAC TROMETHAMINE
  7. TRAZODONE [Concomitant]
     Active Substance: TRAZODONE HYDROCHLORIDE
  8. LAMICTAL [Concomitant]
     Active Substance: LAMOTRIGINE
  9. SERTRALINE [Concomitant]
     Active Substance: SERTRALINE HYDROCHLORIDE

REACTIONS (2)
  - Eye swelling [Unknown]
  - Eye pain [Unknown]
